FAERS Safety Report 24382375 (Version 2)
Quarter: 2024Q4

REPORT INFORMATION
  Report Type: Spontaneous
  Country: US (occurrence: US)
  Receive Date: 20241001
  Receipt Date: 20241010
  Transmission Date: 20250114
  Serious: No
  Sender: IPSEN
  Company Number: US-IPSEN Group, Research and Development-2024-19379

PATIENT
  Sex: Female

DRUGS (2)
  1. DYSPORT [Suspect]
     Active Substance: ABOBOTULINUMTOXINA
     Indication: Skin cosmetic procedure
     Route: 065
     Dates: start: 2023, end: 2023
  2. DYSPORT [Suspect]
     Active Substance: ABOBOTULINUMTOXINA
     Route: 065
     Dates: start: 2024, end: 2024

REACTIONS (2)
  - Contusion [Unknown]
  - Drug ineffective [Unknown]
